FAERS Safety Report 5099114-5 (Version None)
Quarter: 2006Q3

REPORT INFORMATION
  Report Type: 
  Country: None (occurrence: None)
  Receive Date: 20060731
  Receipt Date: 20051122
  Transmission Date: 20061208
  Serious: Yes (Other)
  Sender: FDA-Public Use
  Company Number: 219407

PATIENT
  Age: 56 Year
  Sex: Female
  Weight: 76.2 kg

DRUGS (3)
  1. RITUXAN [Suspect]
     Indication: NON-HODGKIN'S LYMPHOMA
     Dates: start: 20030701
  2. FLUDARABINE PHOSPHATE [Concomitant]
  3. THYROID MEDICATION (THYROID DRUGS NOS) [Concomitant]

REACTIONS (2)
  - HERPES ZOSTER [None]
  - NEUTROPENIA [None]
